FAERS Safety Report 8623444-0 (Version None)
Quarter: 2012Q3

REPORT INFORMATION
  Report Type: 
  Country: None (occurrence: None)
  Receive Date: 20120827
  Receipt Date: 20120822
  Transmission Date: 20120928
  Serious: Yes (Hospitalization)
  Sender: FDA-Public Use
  Company Number: JP-009507513-1208JPN003971

PATIENT

DRUGS (11)
  1. REBETOL [Suspect]
     Indication: HEPATITIS C
     Dosage: 600 MG, QD
     Route: 048
     Dates: start: 20120517, end: 20120613
  2. TELAVIC [Suspect]
     Dosage: 1500 MG, QD
     Route: 048
     Dates: start: 20120718, end: 20120726
  3. MOTILIUM [Concomitant]
     Indication: PROPHYLAXIS
     Dosage: 30 MG, QD; FORMULATION POR
     Route: 048
     Dates: start: 20120517
  4. REBETOL [Suspect]
     Dosage: 400 MG, QD
     Route: 048
  5. TELAVIC [Suspect]
     Indication: HEPATITIS C
     Dosage: 2250 MG, QD
     Route: 048
     Dates: start: 20120517, end: 20120525
  6. TELAVIC [Suspect]
     Dosage: 2250 MG, QD
     Route: 048
  7. GASMOTIN [Concomitant]
     Indication: PROPHYLAXIS
     Dosage: 15 MG, QD; FORMULATION POR
     Route: 048
     Dates: start: 20120517
  8. PEG-INTRON [Suspect]
     Indication: HEPATITIS C
     Dosage: 1.5 MICROGRAM PER KILOGRAM, QW
     Route: 058
     Dates: start: 20120517
  9. DIFLORASONE DIACETATE [Concomitant]
     Dosage: Q.S, QD
     Route: 061
     Dates: start: 20120519
  10. REBETOL [Suspect]
     Dosage: 400 MG, QD
     Route: 048
     Dates: start: 20120614, end: 20120628
  11. NIZATIDINE [Concomitant]
     Indication: PROPHYLAXIS
     Dosage: 150 MG, QD; FORMULATION POR
     Route: 048
     Dates: start: 20120517

REACTIONS (5)
  - DRUG ERUPTION [None]
  - HYPERGLYCAEMIA [None]
  - MALAISE [None]
  - HAEMOGLOBIN DECREASED [None]
  - DECREASED APPETITE [None]
